FAERS Safety Report 7140975-3 (Version None)
Quarter: 2010Q4

REPORT INFORMATION
  Report Type: 
  Country: None (occurrence: None)
  Receive Date: 20101201
  Receipt Date: 20101201
  Transmission Date: 20110411
  Serious: No
  Sender: FDA-Public Use
  Company Number: None

PATIENT

DRUGS (1)
  1. LEVAQUIN [Suspect]
     Dosage: 500 MILLIGRAMS
     Dates: start: 20101020, end: 20101029

REACTIONS (3)
  - ASTHENIA [None]
  - JOINT SWELLING [None]
  - PAIN [None]
